FAERS Safety Report 9899540 (Version 1)
Quarter: 2014Q1

REPORT INFORMATION
  Report Type: Spontaneous
  Country: FR (occurrence: FR)
  Receive Date: 20140214
  Receipt Date: 20140214
  Transmission Date: 20141002
  Serious: Yes (Hospitalization, Other)
  Sender: FDA-Public Use
  Company Number: FR-ABBVIE-14P-056-1201833-00

PATIENT
  Age: 77 Year
  Sex: Female

DRUGS (7)
  1. MONOZECLAR [Suspect]
     Indication: ODYNOPHAGIA
     Route: 048
     Dates: start: 20090504, end: 20090508
  2. MONOZECLAR [Suspect]
     Indication: PYREXIA
  3. MONOZECLAR [Suspect]
     Indication: DIARRHOEA
  4. SURGAM [Suspect]
     Indication: ODYNOPHAGIA
     Route: 048
     Dates: start: 20090504, end: 20090508
  5. SURGAM [Suspect]
     Indication: PYREXIA
  6. SURGAM [Suspect]
     Indication: DIARRHOEA
  7. SOLUPRED [Suspect]
     Indication: PRODUCT USED FOR UNKNOWN INDICATION
     Route: 048
     Dates: start: 200905, end: 20090504

REACTIONS (7)
  - General physical health deterioration [Unknown]
  - Laryngeal oedema [Recovered/Resolved]
  - Pleural effusion [Unknown]
  - Septic shock [Unknown]
  - Renal failure acute [Unknown]
  - Cellulitis [Recovered/Resolved]
  - Drug intolerance [Unknown]
